FAERS Safety Report 7589643-4 (Version None)
Quarter: 2011Q2

REPORT INFORMATION
  Report Type: 
  Country: None (occurrence: None)
  Receive Date: 20110603
  Receipt Date: 20110317
  Transmission Date: 20111010
  Serious: No
  Sender: FDA-Public Use
  Company Number: 2011SP012251

PATIENT
  Age: 64 Year
  Sex: Female

DRUGS (5)
  1. WELLBUTRIN [Concomitant]
  2. SAPHRIS [Suspect]
     Indication: DEPRESSION
     Dosage: 5 MG;QD;SL ; 10 MG;QD;SL 15 MG;QD;SL
     Route: 060
     Dates: start: 20090901
  3. SYNTHROID [Concomitant]
  4. LAMICTAL [Concomitant]
  5. ZOCOR [Concomitant]

REACTIONS (5)
  - TREMOR [None]
  - UNDERDOSE [None]
  - INAPPROPRIATE SCHEDULE OF DRUG ADMINISTRATION [None]
  - MUSCULOSKELETAL STIFFNESS [None]
  - SEDATION [None]
